FAERS Safety Report 10119757 (Version 1)
Quarter: 2014Q2

REPORT INFORMATION
  Report Type: Spontaneous
  Country: US (occurrence: US)
  Receive Date: 20140425
  Receipt Date: 20140425
  Transmission Date: 20141212
  Serious: No
  Sender: FDA-Public Use
  Company Number: US-PFIZER INC-2014110214

PATIENT
  Age: 76 Year
  Sex: Female

DRUGS (4)
  1. ZYVOX [Suspect]
     Indication: ENTEROCOCCAL INFECTION
     Dosage: 600 MG, 2X/DAY
     Dates: start: 20140303, end: 20140317
  2. ZYVOX [Suspect]
     Dosage: 600 MG, 2X/DAY
     Dates: start: 20140321, end: 20140327
  3. ZYVOX [Suspect]
     Dosage: 600 MG, 2X/DAY
     Dates: start: 20140408, end: 20140409
  4. ZYVOX [Suspect]
     Dosage: 600 MG, 2X/DAY
     Dates: start: 20140414

REACTIONS (1)
  - Dysphagia [Unknown]
